FAERS Safety Report 18341463 (Version 1)
Quarter: 2020Q4

REPORT INFORMATION
  Report Type: Spontaneous
  Country: AR (occurrence: AR)
  Receive Date: 20201004
  Receipt Date: 20201004
  Transmission Date: 20210113
  Serious: Yes (Other)
  Sender: FDA-Public Use
  Company Number: AR-TEVA-2020-AR-1834576

PATIENT
  Age: 65 Year
  Sex: Male

DRUGS (3)
  1. VILDAGLIPTIN [Concomitant]
     Active Substance: VILDAGLIPTIN
     Indication: TYPE 2 DIABETES MELLITUS
     Dosage: 100 MILLIGRAM DAILY; 50 MG AT LUNCH AND 50 MG AT DINNER
     Dates: start: 2008
  2. TRASTOCIR [Suspect]
     Active Substance: CILOSTAZOL
     Dosage: 50 MILLIGRAM DAILY; WITH BREAKFAST
     Dates: start: 20200906, end: 20200922
  3. GLYCLAZIDE (DIAMICRON) [Concomitant]
     Indication: TYPE 2 DIABETES MELLITUS
     Dosage: 120 MILLIGRAM DAILY; 60 MG AT BREAKFAST AND 60 MG AT MID-DAY
     Dates: start: 2009

REACTIONS (1)
  - Blood glucose fluctuation [Not Recovered/Not Resolved]

NARRATIVE: CASE EVENT DATE: 20200908
